FAERS Safety Report 5207006-3 (Version None)
Quarter: 2007Q1

REPORT INFORMATION
  Report Type: 
  Country: None (occurrence: None)
  Receive Date: 20070112
  Receipt Date: 20070102
  Transmission Date: 20070707
  Serious: Yes (Hospitalization)
  Sender: FDA-Public Use
  Company Number: KR-NOVOPROD-256919

PATIENT
  Age: 53 Year
  Sex: Female

DRUGS (1)
  1. NOVORAPID [Suspect]
     Indication: INSULIN-REQUIRING TYPE II DIABETES MELLITUS
     Route: 058

REACTIONS (2)
  - BLOOD GLUCOSE FLUCTUATION [None]
  - RENAL DISORDER [None]
